FAERS Safety Report 10462431 (Version 2)
Quarter: 2014Q3

REPORT INFORMATION
  Report Type: Report from Study
  Country: DE (occurrence: DE)
  Receive Date: 20140918
  Receipt Date: 20140918
  Transmission Date: 20150326
  Serious: Yes (Life-Threatening, Hospitalization)
  Sender: FDA-Public Use
  Company Number: DE-ROCHE-1428378

PATIENT
  Age: 69 Year
  Sex: Female
  Weight: 61 kg

DRUGS (8)
  1. CYCLOPHOSPHAMIDE. [Suspect]
     Active Substance: CYCLOPHOSPHAMIDE
     Indication: BREAST CANCER
     Route: 042
     Dates: start: 20140404
  2. PERTUZUMAB [Suspect]
     Active Substance: PERTUZUMAB
     Indication: BREAST CANCER
     Dosage: LAST DOSE PRIOR TO AE: 23/MAY/2014
     Route: 042
     Dates: start: 20131115
  3. PACLITAXEL. [Suspect]
     Active Substance: PACLITAXEL
     Indication: BREAST CANCER
     Dosage: LAST DOSE PRIOR TO AE: 28/MAR/2014
     Route: 042
     Dates: start: 20131115
  4. DEXAMETHASONE. [Concomitant]
     Active Substance: DEXAMETHASONE
     Route: 065
     Dates: start: 20140613, end: 20140614
  5. EMEND [Concomitant]
     Active Substance: APREPITANT
     Route: 065
     Dates: start: 20140613, end: 20140614
  6. UROMITEXAN [Concomitant]
     Active Substance: MESNA
     Route: 065
     Dates: start: 20140613, end: 20140614
  7. EPIRUBICIN [Suspect]
     Active Substance: EPIRUBICIN
     Indication: BREAST CANCER
     Dosage: LAST DOSE PRIOR TO AE: 13/JUN/2014
     Route: 042
     Dates: start: 20140404
  8. SANCUSO [Concomitant]
     Active Substance: GRANISETRON
     Route: 065
     Dates: start: 20140613, end: 20140618

REACTIONS (4)
  - Thrombocytopenia [Recovered/Resolved]
  - Leukopenia [Recovered/Resolved]
  - Infection [Recovered/Resolved]
  - Anaemia [Recovered/Resolved]

NARRATIVE: CASE EVENT DATE: 20140622
